FAERS Safety Report 8477788-6 (Version None)
Quarter: 2012Q2

REPORT INFORMATION
  Report Type: 
  Country: None (occurrence: None)
  Receive Date: 20120622
  Receipt Date: 20120607
  Transmission Date: 20120825
  Serious: Yes (Hospitalization, Other)
  Sender: FDA-Public Use
  Company Number: JPI-P-021926

PATIENT
  Age: 38 Year
  Sex: Female

DRUGS (2)
  1. XYREM [Suspect]
     Indication: NARCOLEPSY
     Dosage: ORAL, 7.5 GM (3.75 GM, 2 IN 1 D), ORAL
     Route: 048
     Dates: end: 20120601
  2. XYREM [Suspect]
     Indication: NARCOLEPSY
     Dosage: ORAL, 7.5 GM (3.75 GM, 2 IN 1 D), ORAL
     Route: 048
     Dates: start: 20090801

REACTIONS (16)
  - UTERINE PROLAPSE [None]
  - FIBROMYALGIA [None]
  - DYSPEPSIA [None]
  - RESTLESSNESS [None]
  - ABNORMAL DREAMS [None]
  - RECTAL PROLAPSE [None]
  - PELVIC PROLAPSE [None]
  - INITIAL INSOMNIA [None]
  - HANGOVER [None]
  - ENDOMETRIOSIS [None]
  - MAMMOPLASTY [None]
  - DIARRHOEA [None]
  - VAGINAL PROLAPSE [None]
  - BLADDER PROLAPSE [None]
  - INSOMNIA [None]
  - POST PROCEDURAL INFECTION [None]
